FAERS Safety Report 5793572-6 (Version None)
Quarter: 2008Q2

REPORT INFORMATION
  Report Type: 
  Country: None (occurrence: None)
  Receive Date: 20080627
  Receipt Date: 20080515
  Transmission Date: 20081010
  Serious: No
  Sender: FDA-Public Use
  Company Number: A0718654A

PATIENT
  Age: 86 Year
  Sex: Female

DRUGS (8)
  1. VENTOLIN [Suspect]
     Indication: EMPHYSEMA
     Route: 055
     Dates: start: 20060101
  2. OXYGEN [Concomitant]
  3. LOTENSIN [Concomitant]
  4. ACTOS [Concomitant]
  5. SPIRIVA [Concomitant]
  6. CALCIUM [Concomitant]
  7. IRON [Concomitant]
  8. VITAMINS [Concomitant]

REACTIONS (2)
  - DYSPNOEA [None]
  - PHARMACEUTICAL PRODUCT COMPLAINT [None]
